FAERS Safety Report 5240430-1 (Version None)
Quarter: 2007Q1

REPORT INFORMATION
  Report Type: 
  Country: None (occurrence: None)
  Receive Date: 20070219
  Receipt Date: 20070206
  Transmission Date: 20070707
  Serious: Yes (Other)
  Sender: FDA-Public Use
  Company Number: PHBS2007BR02287

PATIENT
  Age: 65 Year
  Sex: Female

DRUGS (3)
  1. SLOW-K [Suspect]
     Indication: BLOOD POTASSIUM DECREASED
     Dosage: 600 MG/DAY
     Route: 048
     Dates: start: 20030101
  2. LIPITOR [Concomitant]
     Indication: BLOOD CHOLESTEROL
     Dosage: 1 TABLET/DAY
     Route: 048
  3. CYMBALTA [Concomitant]
     Indication: DEPRESSION
     Dosage: 1 TABLET/DAY
     Route: 048

REACTIONS (6)
  - BLOOD PRESSURE INCREASED [None]
  - DEPRESSION [None]
  - EYE DISORDER [None]
  - MUSCLE SPASMS [None]
  - NERVOUSNESS [None]
  - POOR QUALITY SLEEP [None]
